FAERS Safety Report 25217747 (Version 1)
Quarter: 2025Q2

REPORT INFORMATION
  Report Type: Report from Study
  Country: US (occurrence: US)
  Receive Date: 20250420
  Receipt Date: 20250420
  Transmission Date: 20250716
  Serious: Yes (Hospitalization, Other)
  Sender: BAUSCH AND LOMB
  Company Number: US-BAUSCHBL-2025BNL006535

PATIENT
  Age: 65 Year
  Sex: Male

DRUGS (7)
  1. MIEBO [Suspect]
     Active Substance: PERFLUOROHEXYLOCTANE
     Indication: Product used for unknown indication
     Dosage: BOTTLE PREPARATION REQUIRED. REFER TO PACKAGE INSERT FOR SPECIAL PREPARATION + ADMINI. INSTRUCTION.
     Route: 047
     Dates: start: 20231016
  2. LANTUS U-100 INSULIN [Concomitant]
     Indication: Product used for unknown indication
     Route: 065
  3. MULTIVITAMINS WITH EXTRA C [Concomitant]
     Indication: Product used for unknown indication
     Route: 065
  4. CEQUA [Concomitant]
     Active Substance: CYCLOSPORINE
     Indication: Product used for unknown indication
     Route: 065
  5. LEVEMIR U-100 INSULIN [Concomitant]
     Indication: Product used for unknown indication
     Route: 065
  6. FISH OIL [Concomitant]
     Active Substance: FISH OIL
     Indication: Product used for unknown indication
     Route: 065
  7. VICTOZA [Concomitant]
     Active Substance: LIRAGLUTIDE
     Indication: Product used for unknown indication
     Route: 065

REACTIONS (2)
  - Chest discomfort [Unknown]
  - Surgery [Unknown]

NARRATIVE: CASE EVENT DATE: 20241202
